FAERS Safety Report 10644940 (Version 1)
Quarter: 2014Q4

REPORT INFORMATION
  Report Type: Spontaneous
  Country: BE (occurrence: BE)
  Receive Date: 20141211
  Receipt Date: 20141211
  Transmission Date: 20150529
  Serious: Yes (Hospitalization)
  Sender: FDA-Public Use
  Company Number: BE-ACCORD-027465

PATIENT
  Age: 69 Year
  Sex: Female

DRUGS (12)
  1. LETROZOLE. [Suspect]
     Active Substance: LETROZOLE
     Indication: BREAST CANCER METASTATIC
  2. ABIRATERONE [Concomitant]
     Active Substance: ABIRATERONE
  3. HEPARIN [Concomitant]
     Active Substance: HEPARIN SODIUM
     Indication: ATRIAL FIBRILLATION
     Dosage: LOW-MOLECULAR-WEIGHT-HEPARIN
  4. LORMETAZEPAM [Concomitant]
     Active Substance: LORMETAZEPAM
  5. ZOLEDRONIC ACID [Concomitant]
     Active Substance: ZOLEDRONIC ACID
     Route: 042
  6. EXEMESTANE. [Suspect]
     Active Substance: EXEMESTANE
     Indication: BREAST CANCER METASTATIC
     Dates: start: 201211
  7. SIMVASTATIN. [Interacting]
     Active Substance: SIMVASTATIN
     Indication: PRODUCT USED FOR UNKNOWN INDICATION
  8. TAMOXIFEN [Concomitant]
     Active Substance: TAMOXIFEN
  9. LOSARTAN [Concomitant]
     Active Substance: LOSARTAN
  10. BISOPROLOL [Concomitant]
     Active Substance: BISOPROLOL
  11. EVEROLIMUS [Interacting]
     Active Substance: EVEROLIMUS
     Indication: BREAST CANCER METASTATIC
     Dates: start: 201211
  12. PHENPROCOUMON [Concomitant]
     Active Substance: PHENPROCOUMON
     Indication: ATRIAL FIBRILLATION

REACTIONS (6)
  - Acute kidney injury [Recovering/Resolving]
  - Diarrhoea [Recovered/Resolved]
  - Drug resistance [Unknown]
  - Lethargy [Unknown]
  - Weight decreased [Unknown]
  - Drug interaction [Unknown]
